FAERS Safety Report 25679240 (Version 1)
Quarter: 2025Q3

REPORT INFORMATION
  Report Type: Spontaneous
  Country: GB (occurrence: None)
  Receive Date: 20250814
  Receipt Date: 20250814
  Transmission Date: 20251020
  Serious: Yes (Other)
  Sender: ORION
  Company Number: None

PATIENT
  Age: 76 Year
  Sex: Female
  Weight: 67 kg

DRUGS (2)
  1. METHOTREXATE [Suspect]
     Active Substance: METHOTREXATE
     Indication: Polymyalgia rheumatica
     Dates: start: 20250315, end: 20250315
  2. FOLIC ACID [Concomitant]
     Active Substance: FOLIC ACID
     Dates: start: 2025

REACTIONS (4)
  - Diarrhoea [Recovered/Resolved with Sequelae]
  - Product use in unapproved indication [Unknown]
  - Irritable bowel syndrome [Unknown]
  - Gluten sensitivity [Unknown]

NARRATIVE: CASE EVENT DATE: 20250315
